FAERS Safety Report 13524352 (Version 3)
Quarter: 2019Q3

REPORT INFORMATION
  Report Type: Spontaneous
  Country: CA (occurrence: CA)
  Receive Date: 20170508
  Receipt Date: 20190906
  Transmission Date: 20191004
  Serious: Yes (Other)
  Sender: FDA-Public Use
  Company Number: CA-VERTEX PHARMACEUTICALS-2017-002414

PATIENT
  Sex: Male

DRUGS (2)
  1. POSACONAZOLE [Concomitant]
     Active Substance: POSACONAZOLE
     Indication: SCEDOSPORIUM INFECTION
     Dosage: 200 MG, DAILY
  2. ORKAMBI [Suspect]
     Active Substance: IVACAFTOR\LUMACAFTOR
     Indication: CYSTIC FIBROSIS
     Dosage: 1 DOSAGE FORM, QD
     Route: 048

REACTIONS (1)
  - Hypertensive crisis [Recovering/Resolving]
